FAERS Safety Report 5243192-7 (Version None)
Quarter: 2007Q1

REPORT INFORMATION
  Report Type: 
  Country: None (occurrence: None)
  Receive Date: 20070215
  Receipt Date: 20070201
  Transmission Date: 20070707
  Serious: Yes (Life-Threatening)
  Sender: FDA-Public Use
  Company Number: NASJP-07-0121

PATIENT
  Age: 80 Year
  Sex: Male

DRUGS (2)
  1. NAROPIN [Suspect]
     Indication: DRUG USE FOR UNKNOWN INDICATION
     Dates: start: 20061001, end: 20061001
  2. INFLUENZA HA VACCINE (INFLUENZA VACCINE) [Concomitant]

REACTIONS (1)
  - SHOCK [None]
